FAERS Safety Report 17078416 (Version 1)
Quarter: 2019Q4

REPORT INFORMATION
  Report Type: Spontaneous
  Country: DE (occurrence: DE)
  Receive Date: 20191126
  Receipt Date: 20191126
  Transmission Date: 20200122
  Serious: Yes (Hospitalization)
  Sender: FDA-Public Use
  Company Number: NVSC2019DE044284

PATIENT
  Age: 13 Year
  Sex: Female
  Weight: 48 kg

DRUGS (5)
  1. ALLOPURINOL. [Concomitant]
     Active Substance: ALLOPURINOL
     Indication: RENAL DISORDER
     Dosage: 100 MG
     Route: 048
     Dates: start: 20190125
  2. ROCALTROL [Concomitant]
     Active Substance: CALCITRIOL
     Indication: RENAL DISORDER
     Dosage: 0.25 UG
     Route: 048
     Dates: start: 20190125
  3. RAMIPRIL. [Concomitant]
     Active Substance: RAMIPRIL
     Indication: RENAL DISORDER
     Dosage: 2.5 MG
     Route: 048
     Dates: start: 20190125
  4. SPIROLACTON [Concomitant]
     Indication: RENAL DISORDER
     Dosage: 25 MG
     Route: 048
     Dates: start: 20190125
  5. FUROSEMIDE. [Suspect]
     Active Substance: FUROSEMIDE
     Indication: RENAL DISORDER
     Dosage: 40 MG
     Route: 048
     Dates: start: 20190125

REACTIONS (1)
  - Hyponatraemia [Recovering/Resolving]

NARRATIVE: CASE EVENT DATE: 20190131
